FAERS Safety Report 22294494 (Version 8)
Quarter: 2024Q3

REPORT INFORMATION
  Report Type: Report from Study
  Country: CA (occurrence: CA)
  Receive Date: 20230508
  Receipt Date: 20240903
  Transmission Date: 20241016
  Serious: Yes (Hospitalization, Other)
  Sender: GLAXOSMITHKLINE
  Company Number: CA-GLAXOSMITHKLINE-CA2023064526

PATIENT

DRUGS (21)
  1. MEPOLIZUMAB [Suspect]
     Active Substance: MEPOLIZUMAB
     Indication: Asthma
     Dosage: 100 MG, Q4W
     Route: 058
     Dates: start: 20180130
  2. MEPOLIZUMAB [Suspect]
     Active Substance: MEPOLIZUMAB
     Indication: Asthma
     Dosage: 100 MG, Q4W
     Route: 058
  3. MEPOLIZUMAB [Suspect]
     Active Substance: MEPOLIZUMAB
     Indication: Asthma
     Dosage: 100 MG, Q4W
     Route: 058
  4. MEPOLIZUMAB [Suspect]
     Active Substance: MEPOLIZUMAB
     Indication: Asthma
     Dosage: 100 MG, Q4W
     Route: 058
  5. PREDNISONE [Suspect]
     Active Substance: PREDNISONE
     Indication: Polymyalgia rheumatica
     Dosage: 50 MG, QD
  6. PREDNISONE [Suspect]
     Active Substance: PREDNISONE
     Indication: Dyspnoea
     Dosage: UNK UNK, QD
  7. CORTISONE [Suspect]
     Active Substance: CORTISONE
     Indication: Product used for unknown indication
     Dosage: UNK
  8. ALBUTEROL [Concomitant]
     Active Substance: ALBUTEROL
     Indication: Product used for unknown indication
     Dosage: 1 MG, TID
  9. ZENHALE [Concomitant]
     Active Substance: FORMOTEROL FUMARATE\MOMETASONE FUROATE
     Indication: Product used for unknown indication
     Dosage: 2 PUFF(S), BID, 200MCG-5MCG
  10. VENTOLIN [Concomitant]
     Active Substance: ALBUTEROL SULFATE
     Indication: Product used for unknown indication
     Dosage: 10 UG AS NEEDED PRN
  11. PREGABALIN [Concomitant]
     Active Substance: PREGABALIN
     Indication: Product used for unknown indication
     Dosage: 75 MG, BID
  12. PREGABALIN [Concomitant]
     Active Substance: PREGABALIN
     Dosage: UNK UNK, BID, 75
  13. CYCLOBENZAPRINE [Concomitant]
     Active Substance: CYCLOBENZAPRINE
     Indication: Product used for unknown indication
     Dosage: 10 MG, QD
  14. OMNARIS [Concomitant]
     Active Substance: CICLESONIDE
     Indication: Product used for unknown indication
     Dosage: UNK
  15. SOLIFENACIN [Concomitant]
     Active Substance: SOLIFENACIN
     Indication: Product used for unknown indication
     Dosage: 10 MG, QD
  16. PANTOPRAZOLE [Concomitant]
     Active Substance: PANTOPRAZOLE
     Indication: Product used for unknown indication
     Dosage: 40 MG, BID
  17. OZEMPIC [Concomitant]
     Active Substance: SEMAGLUTIDE
     Indication: Type 2 diabetes mellitus
     Dosage: UNK
  18. ATIVAN [Concomitant]
     Active Substance: LORAZEPAM
     Indication: Product used for unknown indication
     Dosage: 1 MG, AS NEEDED PRN
  19. LASIX [Concomitant]
     Active Substance: FUROSEMIDE
     Indication: Product used for unknown indication
     Dosage: 40 MG, QD
  20. PULMICORT TURBUHALER [Concomitant]
     Active Substance: BUDESONIDE
     Indication: Nasal polyps
     Dosage: 0.5 MG, MASK BID NEB
  21. PULMICORT TURBUHALER [Concomitant]
     Active Substance: BUDESONIDE
     Dosage: 0.25 MG  AMPOULES

REACTIONS (23)
  - Hospitalisation [Unknown]
  - Hyperglycaemia [Recovered/Resolved with Sequelae]
  - Hypoglycaemia [Unknown]
  - Polymyalgia rheumatica [Not Recovered/Not Resolved]
  - Bronchitis [Recovering/Resolving]
  - Nasopharyngitis [Recovering/Resolving]
  - Rheumatoid arthritis [Unknown]
  - SARS-CoV-2 test positive [Recovered/Resolved]
  - Headache [Not Recovered/Not Resolved]
  - Dyspnoea [Recovering/Resolving]
  - Cough [Unknown]
  - Candida infection [Recovering/Resolving]
  - Chills [Unknown]
  - Pyrexia [Unknown]
  - Fatigue [Unknown]
  - Pain [Unknown]
  - Blood glucose increased [Unknown]
  - Urinary tract infection [Unknown]
  - Chest discomfort [Unknown]
  - Dysphonia [Unknown]
  - Back pain [Unknown]
  - Malaise [Unknown]
  - Brain fog [Unknown]

NARRATIVE: CASE EVENT DATE: 20230401
